FAERS Safety Report 11095261 (Version 1)
Quarter: 2015Q2

REPORT INFORMATION
  Report Type: Spontaneous
  Country: US (occurrence: US)
  Receive Date: 20150506
  Receipt Date: 20150506
  Transmission Date: 20150821
  Serious: No
  Sender: FDA-Public Use
  Company Number: US-SA-2014SA139970

PATIENT
  Age: 43 Year
  Sex: Male

DRUGS (2)
  1. SOLOSTAR [Concomitant]
     Active Substance: DEVICE
     Dates: start: 2012
  2. APIDRA SOLOSTAR [Suspect]
     Active Substance: INSULIN GLULISINE
     Indication: TYPE 1 DIABETES MELLITUS
     Dosage: DAILY DOSE: TOTAL OF 30-40 UNITS PER DAY?FREQUENCY: WITH EVERY MEAL
     Route: 065
     Dates: start: 2012

REACTIONS (1)
  - Therapeutic response decreased [Unknown]
